FAERS Safety Report 4335924-7 (Version None)
Quarter: 2004Q2

REPORT INFORMATION
  Report Type: 
  Country: None (occurrence: None)
  Receive Date: 20040406
  Receipt Date: 20040324
  Transmission Date: 20050107
  Serious: Yes (Hospitalization)
  Sender: FDA-Public Use
  Company Number: 04H-056-0254796-00

PATIENT
  Age: 67 Year
  Sex: Male

DRUGS (4)
  1. ERYTHROCIN LACTOBIONATE [Suspect]
     Indication: LUNG DISORDER
     Dosage: 1 GM, THREE TIMES A DAY, INTRAVENOUS
     Route: 042
     Dates: start: 20031013, end: 20031014
  2. SPIRAMYCINE [Suspect]
     Indication: LUNG DISORDER
     Dosage: ^3 NU^ THREE TIMES A DAY, INTRAVENOUS
     Route: 042
     Dates: start: 20031014, end: 20031014
  3. CEFOTAXIME [Concomitant]
  4. CEFTRIAXONE [Concomitant]

REACTIONS (3)
  - PARAESTHESIA [None]
  - RASH ERYTHEMATOUS [None]
  - SKIN REACTION [None]
